FAERS Safety Report 7884758-5 (Version None)
Quarter: 2011Q4

REPORT INFORMATION
  Report Type: 
  Country: None (occurrence: None)
  Receive Date: 20111102
  Receipt Date: 20111028
  Transmission Date: 20120403
  Serious: Yes (Other)
  Sender: FDA-Public Use
  Company Number: NZ-ABBOTT-11P-118-0867483-00

PATIENT
  Weight: 54 kg

DRUGS (1)
  1. HUMIRA [Suspect]
     Indication: ANKYLOSING SPONDYLITIS
     Dates: start: 20100518

REACTIONS (3)
  - DEPRESSION [None]
  - SUICIDAL IDEATION [None]
  - ANXIETY [None]
